FAERS Safety Report 7397411-1 (Version None)
Quarter: 2011Q2

REPORT INFORMATION
  Report Type: 
  Country: None (occurrence: None)
  Receive Date: 20110406
  Receipt Date: 20110328
  Transmission Date: 20111010
  Serious: Yes (Other)
  Sender: FDA-Public Use
  Company Number: FR-ASTRAZENECA-2011SE18417

PATIENT
  Age: 663 Month
  Sex: Male

DRUGS (5)
  1. SPECIAFOLDINE [Suspect]
     Route: 048
     Dates: start: 20070101
  2. NOVATREX [Suspect]
     Route: 048
     Dates: start: 20070101
  3. INDOCIN [Suspect]
     Route: 048
     Dates: start: 20070101
  4. NEXIUM [Suspect]
     Route: 048
     Dates: start: 20070101
  5. REMICADE [Suspect]
     Dosage: 500 MG EVERY 5 TO 6 WEEKS (6 MG/KG)
     Route: 042
     Dates: start: 20050101

REACTIONS (2)
  - DEMYELINATING POLYNEUROPATHY [None]
  - PERIPHERAL SENSORY NEUROPATHY [None]
